FAERS Safety Report 8362634 (Version 2)
Quarter: 2012Q4

REPORT INFORMATION
  Report Type: 
  Country: US (occurrence: US)
  Receive Date: 20120130
  Receipt Date: 20121011
  Transmission Date: 20130627
  Serious: Yes (Hospitalization, Other)
  Sender: FDA-Public Use
  Company Number: US-ELI_LILLY_AND_COMPANY-US201201007838

PATIENT
  Age: 60 Year
  Sex: Male

DRUGS (1)
  1. BYETTA [Suspect]
     Dosage: UNK

REACTIONS (4)
  - Adenocarcinoma pancreas [Unknown]
  - Pancreatitis acute [Unknown]
  - Pancreatitis [Unknown]
  - Enterococcal sepsis [Recovered/Resolved]
